FAERS Safety Report 13552564 (Version 1)
Quarter: 2017Q2

REPORT INFORMATION
  Report Type: Spontaneous
  Country: US (occurrence: US)
  Receive Date: 20170516
  Receipt Date: 20170516
  Transmission Date: 20170830
  Serious: Yes (Life-Threatening)
  Sender: FDA-Public Use
  Company Number: None

PATIENT
  Age: 26 Year
  Sex: Male
  Weight: 87.8 kg

DRUGS (18)
  1. BUMEX [Concomitant]
     Active Substance: BUMETANIDE
  2. CATAPRES [Concomitant]
     Active Substance: CLONIDINE HYDROCHLORIDE
  3. PERICOLACE [Concomitant]
  4. HYDROMORPHONE [Suspect]
     Active Substance: HYDROMORPHONE
     Indication: PAIN
     Dosage: DATES OF USE - RECENT, 2257, 0240, 0643, 1113 ARREST 1136
     Route: 042
  5. COREG [Concomitant]
     Active Substance: CARVEDILOL
  6. HYDRALAZONE [Concomitant]
  7. IMDUR [Concomitant]
     Active Substance: ISOSORBIDE MONONITRATE
  8. KEPPRA [Concomitant]
     Active Substance: LEVETIRACETAM
  9. REGLAN [Concomitant]
     Active Substance: METOCLOPRAMIDE HYDROCHLORIDE
  10. LANTUS [Concomitant]
     Active Substance: INSULIN GLARGINE
  11. HUMALOG [Concomitant]
     Active Substance: INSULIN LISPRO
  12. COZAAR [Concomitant]
     Active Substance: LOSARTAN POTASSIUM
  13. ZOLOFT [Concomitant]
     Active Substance: SERTRALINE HYDROCHLORIDE
  14. ZOFRAN [Concomitant]
     Active Substance: ONDANSETRON HYDROCHLORIDE
  15. NICODERM CQ [Concomitant]
     Active Substance: NICOTINE
  16. OXYCODONE AND ACETAMINOPHEN [Concomitant]
     Active Substance: ACETAMINOPHEN\OXYCODONE HYDROCHLORIDE
  17. PROTONIX [Concomitant]
     Active Substance: PANTOPRAZOLE SODIUM
  18. BENTYL [Concomitant]
     Active Substance: DICYCLOMINE HYDROCHLORIDE

REACTIONS (6)
  - Hyperkalaemia [None]
  - Cardiac arrest [None]
  - Generalised oedema [None]
  - Electrocardiogram QRS complex prolonged [None]
  - Respiratory arrest [None]
  - Restlessness [None]

NARRATIVE: CASE EVENT DATE: 20170119
